FAERS Safety Report 7366299-7 (Version None)
Quarter: 2011Q1

REPORT INFORMATION
  Report Type: 
  Country: None (occurrence: None)
  Receive Date: 20110317
  Receipt Date: 20110317
  Transmission Date: 20110831
  Serious: Yes (Hospitalization)
  Sender: FDA-Public Use
  Company Number: None

PATIENT
  Sex: Female
  Weight: 41 kg

DRUGS (2)
  1. TAXOL [Suspect]
     Dosage: 144 MG
     Dates: end: 20110228
  2. CISPLATIN [Suspect]
     Dosage: 70 MG
     Dates: end: 20110301

REACTIONS (5)
  - DEVICE MALFUNCTION [None]
  - IMPLANT SITE PAIN [None]
  - DEHYDRATION [None]
  - DYSPHAGIA [None]
  - DIARRHOEA [None]
